FAERS Safety Report 6966761-2 (Version None)
Quarter: 2010Q3

REPORT INFORMATION
  Report Type: 
  Country: None (occurrence: None)
  Receive Date: 20100906
  Receipt Date: 20100901
  Transmission Date: 20110219
  Serious: Yes (Death, Life-Threatening, Hospitalization)
  Sender: FDA-Public Use
  Company Number: TW-SANOFI-AVENTIS-2010SA008480

PATIENT
  Age: 78 Year
  Sex: Male
  Weight: 54 kg

DRUGS (10)
  1. AFLIBERCEPT [Suspect]
     Indication: PROSTATE CANCER METASTATIC
     Route: 042
     Dates: start: 20090828, end: 20090828
  2. AFLIBERCEPT [Suspect]
     Route: 042
     Dates: start: 20100122, end: 20100122
  3. AFLIBERCEPT [Suspect]
     Route: 042
     Dates: start: 20100324, end: 20100324
  4. DOCETAXEL [Suspect]
     Indication: PROSTATE CANCER METASTATIC
     Route: 042
     Dates: start: 20090828, end: 20090828
  5. DOCETAXEL [Suspect]
     Route: 042
     Dates: start: 20100122, end: 20100122
  6. DOCETAXEL [Suspect]
     Route: 042
     Dates: start: 20100324, end: 20100324
  7. PREDNISOLONE [Suspect]
     Indication: PROSTATE CANCER METASTATIC
     Dates: start: 20090828, end: 20100324
  8. PLENDIL [Concomitant]
     Dates: start: 20071211
  9. TENORMIN [Concomitant]
     Dates: start: 20071211
  10. ALL OTHER THERAPEUTIC PRODUCTS [Concomitant]
     Dates: start: 20090826

REACTIONS (1)
  - PLEURAL EFFUSION [None]
